FAERS Safety Report 20176921 (Version 5)
Quarter: 2022Q2

REPORT INFORMATION
  Report Type: Spontaneous
  Country: NL (occurrence: NL)
  Receive Date: 20211213
  Receipt Date: 20220509
  Transmission Date: 20220721
  Serious: Yes (Hospitalization, Other)
  Sender: FDA-Public Use
  Company Number: NL-NOVARTISPH-NVSC2021NL280864

PATIENT
  Age: 18 Year
  Sex: Female
  Weight: 43 kg

DRUGS (2)
  1. ACETAMINOPHEN [Suspect]
     Active Substance: ACETAMINOPHEN
     Indication: Intentional overdose
     Dosage: INGESTED 33 TABLETS OF 500 MG BETWEEN 10:00 PM AND 11:00 PM ON THE 27TH OF DECEMBER
     Route: 065
     Dates: start: 20191227, end: 20191227
  2. QUETIAPINE [Concomitant]
     Active Substance: QUETIAPINE
     Indication: Product used for unknown indication
     Dosage: 100 MG DAILY
     Route: 065

REACTIONS (6)
  - Toxicity to various agents [Recovering/Resolving]
  - Drug clearance decreased [Recovered/Resolved]
  - Drug level increased [Recovering/Resolving]
  - Drug-induced liver injury [Recovering/Resolving]
  - Drug abuse [Recovering/Resolving]
  - Intentional overdose [Recovering/Resolving]

NARRATIVE: CASE EVENT DATE: 20191227
